FAERS Safety Report 22301401 (Version 2)
Quarter: 2023Q2

REPORT INFORMATION
  Report Type: Spontaneous
  Country: US (occurrence: US)
  Receive Date: 20230509
  Receipt Date: 20230607
  Transmission Date: 20230722
  Serious: Yes (Other)
  Sender: FDA-Public Use
  Company Number: US-JNJFOC-20230509549

PATIENT
  Sex: Male

DRUGS (6)
  1. OPSUMIT [Suspect]
     Active Substance: MACITENTAN
     Indication: Product used for unknown indication
     Route: 048
     Dates: start: 20200413
  2. OPSUMIT [Suspect]
     Active Substance: MACITENTAN
     Route: 048
  3. FISH OIL [Concomitant]
     Active Substance: FISH OIL
  4. COENZYME Q10 [Concomitant]
     Active Substance: DIETARY SUPPLEMENT\UBIDECARENONE
  5. VITAMIN C [Concomitant]
     Active Substance: ASCORBIC ACID
  6. TADALAFIL [Concomitant]
     Active Substance: TADALAFIL
     Indication: Pulmonary hypertension
     Dates: start: 2016

REACTIONS (3)
  - Pneumonia [Unknown]
  - Oedema peripheral [Unknown]
  - Off label use [Unknown]
